FAERS Safety Report 4523279-4 (Version None)
Quarter: 2004Q4

REPORT INFORMATION
  Report Type: 
  Country: None (occurrence: None)
  Receive Date: 20041210
  Receipt Date: 20041130
  Transmission Date: 20050328
  Serious: Yes (Death, Hospitalization)
  Sender: FDA-Public Use
  Company Number: ES-JNJFOC-20041200409

PATIENT
  Age: 68 Year
  Sex: Male

DRUGS (2)
  1. REMICADE [Suspect]
     Indication: RHEUMATOID ARTHRITIS
     Dosage: 1 YEAR.
     Route: 042
  2. LEFLUNOMIDE [Concomitant]

REACTIONS (1)
  - ASPERGILLOSIS [None]
